FAERS Safety Report 5875042-X (Version None)
Quarter: 2008Q3

REPORT INFORMATION
  Report Type: 
  Country: None (occurrence: None)
  Receive Date: 20080904
  Receipt Date: 20080827
  Transmission Date: 20090109
  Serious: Yes (Hospitalization, Other)
  Sender: FDA-Public Use
  Company Number: 032946

PATIENT
  Age: 86 Year
  Sex: Female
  Weight: 68 kg

DRUGS (5)
  1. HYDRALAZINE HCL [Suspect]
     Indication: HYPERTENSION
     Dosage: 50 MG, TID, ORAL
     Route: 048
     Dates: start: 19980101, end: 20080401
  2. CLONIDINE [Concomitant]
  3. FELODIPINE [Concomitant]
  4. LISINOPRIL W/HYDROCHLOROTHIAZIDE (LISINOPRIL) [Concomitant]
  5. METOPROLOL TARTRATE [Concomitant]

REACTIONS (4)
  - ATRIAL FIBRILLATION [None]
  - GAIT DISTURBANCE [None]
  - LUPUS-LIKE SYNDROME [None]
  - PLEURAL EFFUSION [None]
